FAERS Safety Report 9773280 (Version 1)
Quarter: 2013Q4

REPORT INFORMATION
  Report Type: Spontaneous
  Country: IT (occurrence: IT)
  Receive Date: 20131219
  Receipt Date: 20131219
  Transmission Date: 20140711
  Serious: Yes (Hospitalization, Other)
  Sender: FDA-Public Use
  Company Number: IT-GLAXOSMITHKLINE-B0954203A

PATIENT
  Age: 84 Year
  Sex: Female

DRUGS (5)
  1. ZELITREX [Suspect]
     Indication: PRODUCT USED FOR UNKNOWN INDICATION
     Dosage: 500MG PER DAY
     Route: 048
     Dates: start: 20131030
  2. CARDURA [Suspect]
     Indication: PRODUCT USED FOR UNKNOWN INDICATION
     Dosage: 2MG PER DAY
     Route: 048
     Dates: start: 20131030, end: 20131031
  3. VASORETIC [Suspect]
     Indication: PRODUCT USED FOR UNKNOWN INDICATION
     Route: 065
     Dates: start: 20131030, end: 20131031
  4. TORADOL [Concomitant]
     Route: 048
  5. ACETYLSALICYLIC ACID [Concomitant]

REACTIONS (1)
  - Syncope [Recovering/Resolving]
